FAERS Safety Report 6528223-6 (Version None)
Quarter: 2010Q1

REPORT INFORMATION
  Report Type: 
  Country: None (occurrence: None)
  Receive Date: 20100106
  Receipt Date: 20091228
  Transmission Date: 20100710
  Serious: Yes (Hospitalization)
  Sender: FDA-Public Use
  Company Number: DE-ROCHE-673643

PATIENT
  Sex: Male

DRUGS (13)
  1. BEVACIZUMAB [Suspect]
     Indication: NON-SMALL CELL LUNG CANCER
     Dosage: FORM: INFUSION.
     Route: 042
     Dates: start: 20090402, end: 20090405
  2. BEVACIZUMAB [Suspect]
     Dosage: LAST DOSE PRIOR TO SAE: 30 NOVEMBER 2009
     Route: 042
  3. GEMCITABINE [Suspect]
     Indication: NON-SMALL CELL LUNG CANCER
     Dosage: FORM: INFUSION. FEQUENCY:D1,D8
     Route: 042
     Dates: start: 20090402
  4. GEMCITABINE [Suspect]
     Dosage: FORM: INFUSION. FEQUENCY:D1,D8.
     Route: 042
  5. CISPLATIN [Suspect]
     Indication: NON-SMALL CELL LUNG CANCER
     Dosage: FORM: INFUSION. FREQUENCY: D1. PERMANENTLY DISCONTINUED: 02 APRIL 2009.
     Route: 042
     Dates: start: 20090402, end: 20090402
  6. CARBOPLATIN [Suspect]
     Indication: NON-SMALL CELL LUNG CANCER
     Route: 042
     Dates: start: 20090402
  7. AMLODIPINE [Concomitant]
     Dosage: TDD REPORTED AS 1 DOSE FORM X 1/D. DRUG NAME: AMLODIPIN 10 MG
  8. HYDROCHLOROTHIAZIDE [Concomitant]
     Dosage: TDD REPORTED AS 1 DOSE FORM X 1/D. DRUG NAME: HCT 12.5 MG
  9. TAMSULOSIN HCL [Concomitant]
     Dosage: TDD REPORTED AS 1 DOSE FORM X 1/D. DRUG NAME: TAMSULOSIN 0.4 MG
  10. NEXIUM [Concomitant]
     Dosage: TDD REPORTED AS 1 DOSE FORM X 1/D, DRUG NAME: NEXIUM 20 MG
  11. TRAMAGIT [Concomitant]
     Dosage: TDD REPORTED AS 1 DOSE FORM X 2/D, DRUG NAME: TRAMAGRIT RET 100 MG
  12. SYMBICORT [Concomitant]
     Dosage: TDD REPORTED AS 1 DOSE FORM X 2/D, DRUG NAME: SYMBICORT 320 MG
  13. SPIRIVA [Concomitant]
     Dosage: TDD REPORTED AS 1 DOSE FORM X 1/D

REACTIONS (2)
  - CHRONIC OBSTRUCTIVE PULMONARY DISEASE [None]
  - SPINAL COLUMN STENOSIS [None]
